FAERS Safety Report 7131620-1 (Version None)
Quarter: 2010Q4

REPORT INFORMATION
  Report Type: 
  Country: None (occurrence: None)
  Receive Date: 20101201
  Receipt Date: 20101118
  Transmission Date: 20110411
  Serious: Yes (Hospitalization)
  Sender: FDA-Public Use
  Company Number: JP-ABBOTT-08P-087-0438373-00

PATIENT
  Age: 71 Year
  Sex: Male

DRUGS (3)
  1. LUPLIN SR FOR INJECTION KIT 11.25 [Suspect]
     Indication: PROSTATE CANCER STAGE III
     Route: 058
     Dates: start: 20061222
  2. LUPLIN SR FOR INJECTION KIT 11.25 [Suspect]
     Dates: start: 20061027, end: 20061124
  3. BICALUTAMIDE [Concomitant]
     Indication: PROSTATE CANCER STAGE III
     Route: 048
     Dates: start: 20061013

REACTIONS (2)
  - ILEUS [None]
  - POSTOPERATIVE ILEUS [None]
